FAERS Safety Report 7258791-0 (Version None)
Quarter: 2011Q1

REPORT INFORMATION
  Report Type: 
  Country: None (occurrence: None)
  Receive Date: 20110129
  Receipt Date: 20100517
  Transmission Date: 20110831
  Serious: No
  Sender: FDA-Public Use
  Company Number: US-ABBOTT-10P-163-0645215-00

PATIENT
  Age: 55 Year
  Sex: Female

DRUGS (6)
  1. SYNTHROID [Concomitant]
  2. MENTAX [Concomitant]
  3. HUMIRA [Suspect]
     Indication: ANKYLOSING SPONDYLITIS
     Dates: start: 20080501
  4. ELMIRON [Concomitant]
  5. ELAVIL [Concomitant]
  6. METHOTREXATE [Concomitant]

REACTIONS (4)
  - INJECTION SITE EXTRAVASATION [None]
  - INJECTION SITE URTICARIA [None]
  - INJECTION SITE VESICLES [None]
  - DEVICE MALFUNCTION [None]
